FAERS Safety Report 16357675 (Version 4)
Quarter: 2024Q2

REPORT INFORMATION
  Report Type: Spontaneous
  Country: CA (occurrence: CA)
  Receive Date: 20190527
  Receipt Date: 20240628
  Transmission Date: 20240715
  Serious: Yes (Life-Threatening)
  Sender: FDA-Public Use
  Company Number: CA-MLMSERVICE-20190517-1767187-1

PATIENT
  Age: 17 Year
  Sex: Female

DRUGS (3)
  1. BUPROPION [Suspect]
     Active Substance: BUPROPION\BUPROPION HYDROCHLORIDE
     Indication: Product used for unknown indication
     Dosage: INGESTED AN UNKNOWN AMOUNT
     Route: 048
  2. ESCITALOPRAM [Suspect]
     Active Substance: ESCITALOPRAM OXALATE
     Indication: Product used for unknown indication
     Dosage: INGESTED AN UNKNOWN AMOUNT
     Route: 048
  3. QUETIAPINE [Concomitant]
     Active Substance: QUETIAPINE
     Indication: Product used for unknown indication
     Dosage: INGESTED AN UNKNOWN AMOUNT
     Route: 048

REACTIONS (6)
  - Toxicity to various agents [Recovered/Resolved]
  - Sympathomimetic effect [Recovered/Resolved]
  - Cardiogenic shock [Recovered/Resolved]
  - Seizure [Recovered/Resolved]
  - Arrhythmia [Recovered/Resolved]
  - Intentional overdose [Unknown]
